FAERS Safety Report 8232874-0 (Version None)
Quarter: 2012Q1

REPORT INFORMATION
  Report Type: 
  Country: None (occurrence: None)
  Receive Date: 20120324
  Receipt Date: 20120315
  Transmission Date: 20120608
  Serious: Yes (Hospitalization)
  Sender: FDA-Public Use
  Company Number: US-ASTRAZENECA-2012SE18231

PATIENT
  Age: 60 Year
  Sex: Male

DRUGS (2)
  1. SYMBICORT [Concomitant]
     Route: 055
  2. NEXIUM [Suspect]
     Route: 048

REACTIONS (2)
  - PNEUMONIA [None]
  - CHRONIC OBSTRUCTIVE PULMONARY DISEASE [None]
